FAERS Safety Report 17432761 (Version 2)
Quarter: 2020Q1

REPORT INFORMATION
  Report Type: Spontaneous
  Country: FR (occurrence: FR)
  Receive Date: 20200218
  Receipt Date: 20200229
  Transmission Date: 20200409
  Serious: Yes (Other)
  Sender: FDA-Public Use
  Company Number: FR-AUROBINDO-AUR-APL-2020-007844

PATIENT
  Age: 2 Month
  Sex: Male
  Weight: 1.72 kg

DRUGS (9)
  1. FLUCONAZOLE ARROW [Suspect]
     Active Substance: FLUCONAZOLE
     Indication: CANDIDA INFECTION
     Dosage: UNK
     Route: 042
     Dates: start: 20191224, end: 20191227
  2. JOSACINE [Suspect]
     Active Substance: JOSAMYCIN
     Indication: SEPSIS
     Dosage: 1.5 MILLILITER, ONCE A DAY
     Route: 048
     Dates: start: 20191210, end: 20191226
  3. VANCOMYCINE SANDOZ [Suspect]
     Active Substance: VANCOMYCIN
     Indication: SEPSIS
     Dosage: UNK
     Route: 042
     Dates: start: 20191220, end: 20191230
  4. AMBISOME [Suspect]
     Active Substance: AMPHOTERICIN B
     Indication: CANDIDA INFECTION
     Dosage: UNK
     Route: 042
     Dates: start: 20191227, end: 20200202
  5. PARACETAMOL [Suspect]
     Active Substance: ACETAMINOPHEN
     Indication: PAIN
     Dosage: 30 MILLIGRAM/KILOGRAM, ONCE A DAY
     Route: 042
     Dates: start: 201911
  6. FLUCONAZOLE KABI [Suspect]
     Active Substance: FLUCONAZOLE
     Indication: CANDIDA INFECTION
     Dosage: UNK
     Route: 042
     Dates: start: 20191224, end: 20191227
  7. JOSACINE [Suspect]
     Active Substance: JOSAMYCIN
     Dosage: UNK
     Route: 042
     Dates: start: 20191210, end: 20191226
  8. GENTAMICINE PANPHARMA [Suspect]
     Active Substance: GENTAMICIN
     Indication: SEPSIS
     Dosage: UNK
     Route: 042
     Dates: start: 20191220, end: 20191222
  9. CEFOTAXIME [Suspect]
     Active Substance: CEFOTAXIME SODIUM
     Indication: SEPSIS
     Dosage: UNK
     Route: 042
     Dates: start: 20191226, end: 20191230

REACTIONS (2)
  - Hypertransaminasaemia [Not Recovered/Not Resolved]
  - Gamma-glutamyltransferase increased [Not Recovered/Not Resolved]

NARRATIVE: CASE EVENT DATE: 20200102
